FAERS Safety Report 14196352 (Version 1)
Quarter: 2017Q4

REPORT INFORMATION
  Report Type: Spontaneous
  Country: GB (occurrence: GB)
  Receive Date: 20171116
  Receipt Date: 20171116
  Transmission Date: 20180321
  Serious: Yes (Hospitalization)
  Sender: FDA-Public Use
  Company Number: PHHY2017GB167112

PATIENT

DRUGS (1)
  1. REVOLADE [Suspect]
     Active Substance: ELTROMBOPAG
     Indication: IMMUNE THROMBOCYTOPENIC PURPURA
     Route: 065

REACTIONS (5)
  - Malignant neoplasm progression [Unknown]
  - Haematuria [Unknown]
  - Acute myeloid leukaemia [Unknown]
  - White blood cell count decreased [Unknown]
  - Immune thrombocytopenic purpura [Unknown]
